FAERS Safety Report 12993571 (Version 1)
Quarter: 2016Q4

REPORT INFORMATION
  Report Type: Spontaneous
  Country: US (occurrence: US)
  Receive Date: 20161201
  Receipt Date: 20161201
  Transmission Date: 20170207
  Serious: Yes (Other)
  Sender: FDA-Public Use
  Company Number: None

PATIENT
  Age: 60 Year
  Sex: Male
  Weight: 84.82 kg

DRUGS (7)
  1. METFORMIN [Concomitant]
     Active Substance: METFORMIN HYDROCHLORIDE
  2. GABAPENTIN. [Concomitant]
     Active Substance: GABAPENTIN
  3. IRON [Concomitant]
     Active Substance: IRON
  4. LISINOPRIL. [Concomitant]
     Active Substance: LISINOPRIL
  5. MULTI VITAMIN [Concomitant]
     Active Substance: VITAMINS
  6. LOPERAMIDE HYDROCHLORIDE. [Concomitant]
     Active Substance: LOPERAMIDE HYDROCHLORIDE
  7. NADOLOL. [Suspect]
     Active Substance: NADOLOL
     Indication: GASTROOESOPHAGEAL REFLUX DISEASE
     Dosage: ?          QUANTITY:30;?
     Route: 048
     Dates: start: 20161019, end: 20161101

REACTIONS (6)
  - Cough [None]
  - Dizziness postural [None]
  - Diarrhoea [None]
  - Fatigue [None]
  - Dyspnoea [None]
  - Asthenia [None]

NARRATIVE: CASE EVENT DATE: 20161023
